FAERS Safety Report 21807269 (Version 3)
Quarter: 2023Q1

REPORT INFORMATION
  Report Type: Report from Study
  Country: JP (occurrence: JP)
  Receive Date: 20230102
  Receipt Date: 20230202
  Transmission Date: 20230417
  Serious: Yes (Death, Life-Threatening)
  Sender: FDA-Public Use
  Company Number: JP-JNJFOC-20221260183

PATIENT
  Age: 86 Year
  Sex: Male
  Weight: 43.9 kg

DRUGS (11)
  1. DARATUMUMAB [Suspect]
     Active Substance: DARATUMUMAB
     Indication: Plasma cell myeloma
     Route: 058
     Dates: start: 20211011, end: 20211011
  2. DARATUMUMAB [Suspect]
     Active Substance: DARATUMUMAB
     Route: 058
     Dates: start: 20211018, end: 20211018
  3. DARATUMUMAB [Suspect]
     Active Substance: DARATUMUMAB
     Route: 058
     Dates: start: 20211110, end: 20211110
  4. CARFILZOMIB [Concomitant]
     Active Substance: CARFILZOMIB
     Indication: Plasma cell myeloma
     Dosage: DOSE UNKNOWN
     Route: 065
  5. DEXAMETHASONE [Concomitant]
     Active Substance: DEXAMETHASONE
     Indication: Plasma cell myeloma
     Dosage: DOSE UNKNOWN
     Route: 065
  6. VORICONAZOLE [Concomitant]
     Active Substance: VORICONAZOLE
     Indication: Systemic mycosis
     Route: 065
     Dates: start: 20211016, end: 20211111
  7. MEROPENEM [Concomitant]
     Active Substance: MEROPENEM
     Indication: Pneumonia bacterial
     Route: 065
     Dates: start: 20211023, end: 20211102
  8. BISOPROLOL [Concomitant]
     Active Substance: BISOPROLOL
     Indication: Atrial fibrillation
     Route: 065
     Dates: start: 20211025, end: 20211029
  9. HEPARIN SODIUM [Concomitant]
     Active Substance: HEPARIN SODIUM
     Indication: Embolic stroke
     Dosage: 10000 UNITS
     Route: 065
     Dates: start: 20211029, end: 20211108
  10. WARFARIN [Concomitant]
     Active Substance: WARFARIN
     Indication: Embolic stroke
     Route: 065
     Dates: start: 20211109, end: 20211110
  11. WARFARIN [Concomitant]
     Active Substance: WARFARIN
     Indication: Embolic stroke
     Route: 065
     Dates: start: 20211111, end: 20211111

REACTIONS (5)
  - Plasma cell myeloma [Fatal]
  - Pneumonia bacterial [Recovering/Resolving]
  - Embolic stroke [Not Recovered/Not Resolved]
  - Atrial flutter [Recovering/Resolving]
  - Systemic mycosis [Unknown]

NARRATIVE: CASE EVENT DATE: 20210101
